FAERS Safety Report 11132639 (Version 2)
Quarter: 2015Q2

REPORT INFORMATION
  Report Type: Spontaneous
  Country: US (occurrence: US)
  Receive Date: 20150522
  Receipt Date: 20150528
  Transmission Date: 20150821
  Serious: Yes (Death, Hospitalization)
  Sender: FDA-Public Use
  Company Number: US-INTERMUNE, INC.-201505IM016384

PATIENT
  Age: 62 Year
  Sex: Female

DRUGS (6)
  1. ANTIHYPERTENSIVE MEDICATION [Concomitant]
  2. ESBRIET [Suspect]
     Active Substance: PIRFENIDONE
     Indication: IDIOPATHIC PULMONARY FIBROSIS
     Route: 048
     Dates: start: 2013
  3. PANTOPRAZOLE [Concomitant]
     Active Substance: PANTOPRAZOLE SODIUM
  4. WARFARIN [Concomitant]
     Active Substance: WARFARIN
  5. MULTIVITAMIN [Concomitant]
     Active Substance: VITAMINS
  6. DOMPERIDONE [Concomitant]
     Active Substance: DOMPERIDONE

REACTIONS (2)
  - Acute hepatic failure [Fatal]
  - Coagulopathy [Unknown]
